FAERS Safety Report 5468252-7 (Version None)
Quarter: 2007Q3

REPORT INFORMATION
  Report Type: 
  Country: None (occurrence: None)
  Receive Date: 20070924
  Receipt Date: 20070910
  Transmission Date: 20080115
  Serious: Yes (Other)
  Sender: FDA-Public Use
  Company Number: B0487689A

PATIENT
  Sex: Female

DRUGS (4)
  1. VALACICLOVIR HYDROCHLORIDE (FORMULATION UNKNOWN) (VALACYCLOVIR HCL) (G [Suspect]
     Indication: CYTOMEGALOVIRUS INFECTION
     Dosage: 2 GRAM(S)/FOUR TIMES PER DAY/ORAL
     Route: 048
  2. LIGNOCAINE HYDROCHLORIDE [Concomitant]
  3. MIFEPRISTONE [Concomitant]
  4. MISOPROSTOL [Concomitant]

REACTIONS (3)
  - ABORTION INDUCED [None]
  - DRUG EXPOSURE DURING PREGNANCY [None]
  - ULTRASOUND SCAN ABNORMAL [None]
